FAERS Safety Report 17106297 (Version 1)
Quarter: 2019Q4

REPORT INFORMATION
  Report Type: Spontaneous
  Country: US (occurrence: US)
  Receive Date: 20191203
  Receipt Date: 20191203
  Transmission Date: 20200122
  Serious: No
  Sender: FDA-Public Use
  Company Number: US-CHIESI USA, INC.-US-2019CHI000050

PATIENT

DRUGS (3)
  1. BETHKIS [Suspect]
     Active Substance: TOBRAMYCIN
     Indication: CHRONIC RESPIRATORY DISEASE
     Dosage: 1 DF, BID
     Route: 055
  2. BETHKIS [Suspect]
     Active Substance: TOBRAMYCIN
     Indication: OFF LABEL USE
  3. BETHKIS [Suspect]
     Active Substance: TOBRAMYCIN
     Indication: LUNG DISORDER

REACTIONS (2)
  - Off label use [Unknown]
  - Product prescribing error [Unknown]
